FAERS Safety Report 26094837 (Version 1)
Quarter: 2025Q4

REPORT INFORMATION
  Report Type: Report from Study
  Country: US (occurrence: US)
  Receive Date: 20251126
  Receipt Date: 20251126
  Transmission Date: 20260117
  Serious: Yes (Hospitalization, Other)
  Sender: ABBVIE
  Company Number: US-ABBVIE-6564138

PATIENT
  Sex: Male

DRUGS (2)
  1. HUMIRA [Suspect]
     Active Substance: ADALIMUMAB
     Indication: Product used for unknown indication
     Dosage: SOLUTION FOR INJECTION IN PRE-FILLED PEN?CITRATE FREE
     Route: 058
     Dates: start: 20150101, end: 20250911
  2. AMADOL [Concomitant]
     Indication: Product used for unknown indication
     Route: 048

REACTIONS (1)
  - CSF volume increased [Recovering/Resolving]
